FAERS Safety Report 6178353-6 (Version None)
Quarter: 2009Q2

REPORT INFORMATION
  Report Type: 
  Country: None (occurrence: None)
  Receive Date: 20090504
  Receipt Date: 20071226
  Transmission Date: 20091009
  Serious: No
  Sender: FDA-Public Use
  Company Number: US-ALEXION-A200700130

PATIENT

DRUGS (8)
  1. SOLIRIS [Suspect]
     Indication: PAROXYSMAL NOCTURNAL HAEMOGLOBINURIA
     Dosage: 600 MG, SINGLE
     Route: 042
     Dates: start: 20071219, end: 20071219
  2. SOLIRIS [Suspect]
     Dosage: 600 MG, SINGLE
     Route: 042
     Dates: start: 20071226, end: 20071226
  3. SOLIRIS [Suspect]
     Dosage: 600 MG, SINGLE
     Route: 042
     Dates: start: 20080104, end: 20080104
  4. SOLIRIS [Suspect]
     Dosage: 600 MG, SINGLE
     Route: 042
     Dates: start: 20080111, end: 20080111
  5. SOLIRIS [Suspect]
     Dosage: 900 MG, SINGLE
     Route: 042
     Dates: start: 20080118, end: 20080118
  6. ASPIRIN [Concomitant]
     Dosage: UNK, PRN
     Route: 048
  7. BENADRYL [Concomitant]
     Indication: PREMEDICATION
     Dosage: UNK, UNK
     Dates: start: 20071219, end: 20071219
  8. TYLENOL (CAPLET) [Concomitant]
     Indication: PREMEDICATION
     Dosage: UNK, UNK
     Dates: start: 20071219, end: 20071219

REACTIONS (3)
  - HEADACHE [None]
  - NUCHAL RIGIDITY [None]
  - PAIN [None]
